FAERS Safety Report 9031048 (Version 1)
Quarter: 2013Q1

REPORT INFORMATION
  Report Type: Spontaneous
  Country: US (occurrence: US)
  Receive Date: 20130123
  Receipt Date: 20130123
  Transmission Date: 20140127
  Serious: Yes (Other)
  Sender: FDA-Public Use
  Company Number: US-SANOFI-AVENTIS-2013SA002842

PATIENT
  Age: 34 Year
  Sex: Female

DRUGS (2)
  1. AUBAGIO [Suspect]
     Indication: MULTIPLE SCLEROSIS
     Route: 048
     Dates: start: 20121205
  2. NEURONTIN [Suspect]
     Dates: start: 201212

REACTIONS (3)
  - Loss of consciousness [Recovered/Resolved]
  - Parkinsonian rest tremor [Not Recovered/Not Resolved]
  - Condition aggravated [Not Recovered/Not Resolved]
